FAERS Safety Report 16405584 (Version 1)
Quarter: 2019Q2

REPORT INFORMATION
  Report Type: Report from Study
  Country: IT (occurrence: IT)
  Receive Date: 20190607
  Receipt Date: 20190607
  Transmission Date: 20190711
  Serious: Yes (Other)
  Sender: FDA-Public Use
  Company Number: IT-MYLANLABS-2019M1053077

PATIENT
  Age: 77 Year
  Sex: Female

DRUGS (3)
  1. BISOPROLOL [Suspect]
     Active Substance: BISOPROLOL
     Indication: HYPERTENSION
     Dosage: 1.25 MILLIGRAM, QD
     Route: 048
     Dates: start: 20170515
  2. ZANTIPRIDE                         /06344001/ [Suspect]
     Active Substance: HYDROCHLOROTHIAZIDE\ZOFENOPRIL CALCIUM
     Indication: HYPERTENSION
     Dosage: 1 DOSAGE FORM, QD
     Route: 048
     Dates: start: 20170515
  3. PANTOPRAZOLE [Concomitant]
     Active Substance: PANTOPRAZOLE
     Dosage: UNK

REACTIONS (2)
  - Hypertensive crisis [Recovering/Resolving]
  - Therapy non-responder [Recovering/Resolving]

NARRATIVE: CASE EVENT DATE: 20181018
